FAERS Safety Report 19450634 (Version 2)
Quarter: 2021Q3

REPORT INFORMATION
  Report Type: Spontaneous
  Country: US (occurrence: US)
  Receive Date: 20210622
  Receipt Date: 20210803
  Transmission Date: 20211014
  Serious: Yes (Death, Other)
  Sender: FDA-Public Use
  Company Number: US-PFIZER INC-2021682291

PATIENT
  Age: 51 Year
  Sex: Female
  Weight: 110.65 kg

DRUGS (9)
  1. VITAMIN D 400 [Concomitant]
     Dosage: 10 UG
  2. ALBUTEROL SULFATE. [Concomitant]
     Active Substance: ALBUTEROL SULFATE
     Dosage: UNK
  3. IBRANCE [Suspect]
     Active Substance: PALBOCICLIB
     Indication: BREAST CANCER METASTATIC
     Dosage: 125 MG, CYCLIC (1X/DAY FOR 21 DAYS)
     Route: 048
     Dates: start: 20210217
  4. VITAMIN B12 [Concomitant]
     Active Substance: CYANOCOBALAMIN
     Dosage: 1000 UG
  5. MULTIVITAMINUM [Concomitant]
     Active Substance: VITAMINS
     Dosage: UNK
  6. LETROZOLE. [Concomitant]
     Active Substance: LETROZOLE
     Dosage: UNK [100 % POWDER]
  7. AMLODIPINE BESILATE [Concomitant]
     Active Substance: AMLODIPINE BESYLATE
     Dosage: UNK
  8. ZOLADEX [Concomitant]
     Active Substance: GOSERELIN ACETATE
     Dosage: 3.6 MG
  9. PROBIOTIC 10 [Concomitant]
     Active Substance: DIETARY SUPPLEMENT\PROBIOTICS
     Dosage: UNK

REACTIONS (3)
  - Dyspnoea [Unknown]
  - Death [Fatal]
  - Pulmonary oedema [Unknown]

NARRATIVE: CASE EVENT DATE: 20210718
